FAERS Safety Report 8028480-3 (Version None)
Quarter: 2012Q1

REPORT INFORMATION
  Report Type: 
  Country: None (occurrence: None)
  Receive Date: 20120106
  Receipt Date: 20111228
  Transmission Date: 20120608
  Serious: Yes (Other)
  Sender: FDA-Public Use
  Company Number: BR-SANOFI-AVENTIS-2011SA085368

PATIENT
  Age: 63 Year
  Sex: Male

DRUGS (1)
  1. AMARYL [Suspect]
     Dosage: STRENGTH: 4 MG
     Route: 065
     Dates: start: 20010101

REACTIONS (1)
  - CEREBROVASCULAR ACCIDENT [None]
